FAERS Safety Report 24128414 (Version 7)
Quarter: 2024Q4

REPORT INFORMATION
  Report Type: Report from Study
  Country: US (occurrence: US)
  Receive Date: 20240723
  Receipt Date: 20241113
  Transmission Date: 20250115
  Serious: Yes (Death, Hospitalization)
  Sender: ALNYLAM PHARMACEUTICALS
  Company Number: US-ALNYLAM PHARMACEUTICALS, INC.-ALN-2024-004021

PATIENT

DRUGS (1)
  1. AMVUTTRA [Suspect]
     Active Substance: VUTRISIRAN
     Indication: Hereditary neuropathic amyloidosis
     Dosage: UNK
     Route: 065
     Dates: start: 20240411, end: 20240411

REACTIONS (9)
  - Death [Fatal]
  - Fall [Unknown]
  - Hand fracture [Unknown]
  - Injury [Unknown]
  - Decubitus ulcer [Unknown]
  - Pain [Unknown]
  - Intentional dose omission [Unknown]
  - General physical health deterioration [Not Recovered/Not Resolved]
  - Organ failure [Unknown]

NARRATIVE: CASE EVENT DATE: 20240711
